FAERS Safety Report 7050608-2 (Version None)
Quarter: 2010Q4

REPORT INFORMATION
  Report Type: 
  Country: None (occurrence: None)
  Receive Date: 20101018
  Receipt Date: 20101006
  Transmission Date: 20110411
  Serious: Yes (Hospitalization)
  Sender: FDA-Public Use
  Company Number: DE-ELI_LILLY_AND_COMPANY-DE201010001696

PATIENT
  Age: 7 Year
  Sex: Male

DRUGS (2)
  1. LIPROLOG LISPRO [Suspect]
     Indication: DIABETES MELLITUS
     Dosage: 15 IU, DAILY (1/D)
     Route: 058
     Dates: start: 20100601
  2. BERLINSULIN NPH [Suspect]
     Indication: DIABETES MELLITUS
     Route: 058
     Dates: start: 20100601

REACTIONS (1)
  - HYPERGLYCAEMIA [None]
